FAERS Safety Report 13893532 (Version 3)
Quarter: 2017Q4

REPORT INFORMATION
  Report Type: Spontaneous
  Country: US (occurrence: US)
  Receive Date: 20170822
  Receipt Date: 20171121
  Transmission Date: 20180320
  Serious: Yes (Other)
  Sender: FDA-Public Use
  Company Number: US-BAYER-2017-160820

PATIENT
  Age: 57 Year
  Sex: Female
  Weight: 80.27 kg

DRUGS (2)
  1. GADAVIST [Suspect]
     Active Substance: GADOBUTROL
     Indication: NUCLEAR MAGNETIC RESONANCE IMAGING ABDOMINAL
     Dosage: 7.8 ML, ONCE
     Route: 042
     Dates: start: 20170815, end: 20170815
  2. GADAVIST [Suspect]
     Active Substance: GADOBUTROL
     Indication: MAGNETIC RESONANCE CHOLANGIOPANCREATOGRAPHY

REACTIONS (3)
  - Pharyngeal oedema [Recovering/Resolving]
  - Pruritus generalised [Recovering/Resolving]
  - Contrast media reaction [Recovered/Resolved]

NARRATIVE: CASE EVENT DATE: 201708
